FAERS Safety Report 10607639 (Version 1)
Quarter: 2014Q4

REPORT INFORMATION
  Report Type: Report from Study
  Country: FR (occurrence: FR)
  Receive Date: 20141125
  Receipt Date: 20141125
  Transmission Date: 20150529
  Serious: Yes (Other)
  Sender: FDA-Public Use
  Company Number: FR-CELGENE-FRA-2014112786

PATIENT
  Age: 60 Day

DRUGS (1)
  1. REVLIMID [Suspect]
     Active Substance: LENALIDOMIDE
     Indication: ACUTE MYELOID LEUKAEMIA
     Route: 048

REACTIONS (5)
  - Liver disorder [Unknown]
  - Respiratory disorder [Unknown]
  - Diabetes mellitus [Unknown]
  - Renal failure [Unknown]
  - Cardiovascular disorder [Unknown]
